FAERS Safety Report 4398403-7 (Version None)
Quarter: 2004Q3

REPORT INFORMATION
  Report Type: 
  Country: None (occurrence: None)
  Receive Date: 20040715
  Receipt Date: 20020516
  Transmission Date: 20050211
  Serious: Yes (Disabling, Other)
  Sender: FDA-Public Use
  Company Number: US-MERCK-0205USA02191

PATIENT
  Age: 46 Year
  Sex: Male
  Weight: 77 kg

DRUGS (4)
  1. DILANTIN [Concomitant]
     Route: 065
  2. VIOXX [Suspect]
     Indication: POST PROCEDURAL PAIN
     Route: 048
     Dates: start: 20010314, end: 20010729
  3. VIOXX [Suspect]
     Indication: SWELLING
     Route: 048
     Dates: start: 20010314, end: 20010729
  4. ZOLOFT [Concomitant]
     Route: 065

REACTIONS (31)
  - AMNESIA [None]
  - AURA [None]
  - BLOOD CHOLESTEROL INCREASED [None]
  - CHEST DISCOMFORT [None]
  - CONVULSION [None]
  - COUGH [None]
  - DRUG LEVEL DECREASED [None]
  - DYSPEPSIA [None]
  - DYSPNOEA [None]
  - EMOTIONAL DISTRESS [None]
  - ENCEPHALOMALACIA [None]
  - EXCORIATION [None]
  - FALL [None]
  - FEELING ABNORMAL [None]
  - GRAND MAL CONVULSION [None]
  - HEAD INJURY [None]
  - HEADACHE [None]
  - HEART RATE INCREASED [None]
  - HYPERVENTILATION [None]
  - HYPOGLYCAEMIA [None]
  - INTERVERTEBRAL DISC DISPLACEMENT [None]
  - LUMBAR VERTEBRAL FRACTURE [None]
  - METABOLIC DISORDER [None]
  - NASAL SEPTUM DEVIATION [None]
  - NASAL TURBINATE HYPERTROPHY [None]
  - NOSE DEFORMITY [None]
  - OTITIS MEDIA [None]
  - PALPITATIONS [None]
  - ROAD TRAFFIC ACCIDENT [None]
  - SOMNOLENCE [None]
  - TREMOR [None]
